FAERS Safety Report 10228430 (Version 1)
Quarter: 2014Q2

REPORT INFORMATION
  Report Type: Spontaneous
  Country: US (occurrence: US)
  Receive Date: 20140610
  Receipt Date: 20140610
  Transmission Date: 20141212
  Serious: No
  Sender: FDA-Public Use
  Company Number: US-BAYER-2014-082422

PATIENT
  Age: 66 Year
  Sex: Female

DRUGS (9)
  1. ALEVE CAPLET [Suspect]
  2. HUMIRA [Suspect]
     Indication: CROHN^S DISEASE
     Dosage: 40 MG, UNK
     Dates: start: 20140127
  3. VITAMIN C [Suspect]
  4. CYMBALTA [Concomitant]
     Indication: ARTHRALGIA
     Dosage: 60 MG, BID
  5. DIOVAN [Concomitant]
     Indication: HYPERTENSION
     Dosage: 160 MG, UNK
  6. SEROQUEL [Concomitant]
     Indication: SLEEP DISORDER THERAPY
     Dosage: 100 MG, UNK
  7. PERCOCET [Concomitant]
     Indication: PAIN
     Dosage: UNK UNK, PRN
  8. XANAX [Concomitant]
     Indication: SLEEP DISORDER THERAPY
     Dosage: 2 MG, PRN
  9. VITAMIN D3 [Concomitant]
     Dosage: 1000 IU, UNK

REACTIONS (10)
  - Influenza [None]
  - Headache [None]
  - Chills [None]
  - Pyrexia [None]
  - Drug ineffective [Unknown]
  - Asthenia [Unknown]
  - Decreased appetite [Unknown]
  - Tongue coated [Unknown]
  - Arthralgia [Unknown]
  - Eye pain [Unknown]
